FAERS Safety Report 7106086-8 (Version None)
Quarter: 2010Q4

REPORT INFORMATION
  Report Type: 
  Country: None (occurrence: None)
  Receive Date: 20101018
  Receipt Date: 20091012
  Transmission Date: 20110411
  Serious: Yes (Other)
  Sender: FDA-Public Use
  Company Number: US-WYE-H11605909

PATIENT
  Age: 49 Year
  Sex: Female
  Weight: 65.38 kg

DRUGS (1)
  1. PREMARIN [Suspect]
     Indication: PRODUCT USED FOR UNKNOWN INDICATION
     Dosage: 0.3 MG 1X PER 1 DAY, ORAL
     Route: 048
     Dates: start: 20090908, end: 20090922

REACTIONS (1)
  - VULVAL OEDEMA [None]
